FAERS Safety Report 19364063 (Version 1)
Quarter: 2021Q2

REPORT INFORMATION
  Report Type: Spontaneous
  Country: JP (occurrence: JP)
  Receive Date: 20210603
  Receipt Date: 20210603
  Transmission Date: 20210717
  Serious: Yes (Hospitalization, Other)
  Sender: FDA-Public Use
  Company Number: JP-ACCORD-226751

PATIENT
  Age: 73 Year
  Sex: Male

DRUGS (1)
  1. TACROLIMUS. [Suspect]
     Active Substance: TACROLIMUS
     Indication: MYASTHENIA GRAVIS
     Dates: start: 2010

REACTIONS (4)
  - Influenza [Recovering/Resolving]
  - Pneumonia cryptococcal [Recovering/Resolving]
  - Organising pneumonia [Recovering/Resolving]
  - Pneumonia pneumococcal [Recovering/Resolving]

NARRATIVE: CASE EVENT DATE: 2018
